FAERS Safety Report 5596445-7 (Version None)
Quarter: 2007Q4

REPORT INFORMATION
  Report Type: 
  Country: None (occurrence: None)
  Receive Date: 20071218
  Receipt Date: 20070702
  Transmission Date: 20080405
  Serious: Yes (Hospitalization, Other)
  Sender: FDA-Public Use
  Company Number: 2006054551

PATIENT
  Age: 76 Year
  Sex: Male

DRUGS (1)
  1. BEXTRA [Suspect]
     Indication: ARTHRITIS
     Dosage: 10 MG (10 MG,1 IN 1 D)
     Dates: start: 20020816, end: 20030926

REACTIONS (5)
  - BALANCE DISORDER [None]
  - DEPRESSION [None]
  - DIABETES MELLITUS [None]
  - LIMB INJURY [None]
  - MYOCARDIAL INFARCTION [None]
